FAERS Safety Report 11051151 (Version 1)
Quarter: 2015Q2

REPORT INFORMATION
  Report Type: Report from Study
  Country: DE (occurrence: DE)
  Receive Date: 20150421
  Receipt Date: 20150421
  Transmission Date: 20150821
  Serious: Yes (Other)
  Sender: FDA-Public Use
  Company Number: DE-SA-2015SA021454

PATIENT
  Age: 32 Year
  Sex: Male
  Weight: 84 kg

DRUGS (3)
  1. CORTISONE [Concomitant]
     Active Substance: CORTISONE\HYDROCORTISONE
     Indication: PREMEDICATION
     Route: 042
     Dates: start: 20150202, end: 20150204
  2. LEMTRADA [Suspect]
     Active Substance: ALEMTUZUMAB
     Indication: MULTIPLE SCLEROSIS
     Route: 041
     Dates: start: 20150202, end: 20150206
  3. ACICLOVIR [Suspect]
     Active Substance: ACYCLOVIR
     Indication: ANTIVIRAL PROPHYLAXIS
     Route: 048
     Dates: start: 20150122, end: 20150220

REACTIONS (7)
  - Dizziness [Unknown]
  - Malaise [Recovered/Resolved]
  - Urticaria [Recovered/Resolved]
  - Hallucination, visual [Recovered/Resolved]
  - Body temperature increased [Unknown]
  - Delusion [Unknown]
  - Nausea [Unknown]

NARRATIVE: CASE EVENT DATE: 20150202
